FAERS Safety Report 4412099-7 (Version None)
Quarter: 2004Q3

REPORT INFORMATION
  Report Type: 
  Country: None (occurrence: None)
  Receive Date: 20040730
  Receipt Date: 20040706
  Transmission Date: 20050211
  Serious: Yes (Disabling)
  Sender: FDA-Public Use
  Company Number: PT-GLAXOSMITHKLINE-B0338800A

PATIENT
  Age: 69 Year
  Sex: Female
  Weight: 54 kg

DRUGS (1)
  1. SEROXAT [Suspect]
     Indication: DEPRESSION
     Dosage: 20MG PER DAY
     Route: 048
     Dates: start: 19990101, end: 20030101

REACTIONS (7)
  - ASPERGILLOSIS [None]
  - BURNING SENSATION [None]
  - FUNGAL INFECTION [None]
  - ORAL CANDIDIASIS [None]
  - ORAL DISCOMFORT [None]
  - ORAL MUCOSAL BLISTERING [None]
  - ORAL PRURITUS [None]
